FAERS Safety Report 14517388 (Version 3)
Quarter: 2018Q1

REPORT INFORMATION
  Report Type: Spontaneous
  Country: US (occurrence: US)
  Receive Date: 20180212
  Receipt Date: 20180320
  Transmission Date: 20180509
  Serious: Yes (Hospitalization)
  Sender: FDA-Public Use
  Company Number: US-ROCHE-2064609

PATIENT
  Age: 8 Year
  Sex: Male
  Weight: 24.97 kg

DRUGS (1)
  1. TAMIFLU [Suspect]
     Active Substance: OSELTAMIVIR PHOSPHATE
     Indication: INFLUENZA
     Dosage: 5 DAYS STOPPED EARLY
     Route: 048
     Dates: start: 20180122, end: 20180124

REACTIONS (8)
  - Confusional state [Unknown]
  - Pyrexia [Unknown]
  - Eye irritation [Recovered/Resolved]
  - Memory impairment [Recovered/Resolved]
  - Abnormal behaviour [Unknown]
  - Hallucination, auditory [Recovered/Resolved]
  - Drug hypersensitivity [Unknown]
  - Hallucination [Unknown]

NARRATIVE: CASE EVENT DATE: 20180123
